FAERS Safety Report 9256015 (Version 1)
Quarter: 2013Q2

REPORT INFORMATION
  Report Type: Spontaneous
  Country: US (occurrence: US)
  Receive Date: 20130425
  Receipt Date: 20130425
  Transmission Date: 20140414
  Serious: No
  Sender: FDA-Public Use
  Company Number: US-ASTRAZENECA-2011SE47757

PATIENT
  Age: 67 Year
  Sex: Female

DRUGS (26)
  1. NEXIUM [Suspect]
     Indication: IMPAIRED GASTRIC EMPTYING
     Route: 048
  2. NEXIUM [Suspect]
     Indication: GASTROOESOPHAGEAL REFLUX DISEASE
     Route: 048
  3. ZESTRIL [Suspect]
     Indication: PALPITATIONS
     Route: 048
  4. ZESTRIL [Suspect]
     Indication: OESOPHAGEAL SPASM
     Route: 048
  5. MARCAINE [Suspect]
     Dosage: DOSE AND FREQUENCY UNKNOWN.
     Route: 065
  6. LISINOPRIL [Suspect]
     Indication: PALPITATIONS
     Dosage: DOSE AND FREQUENCY UNKNOWN.
     Route: 065
  7. LISINOPRIL [Suspect]
     Indication: OESOPHAGEAL SPASM
     Dosage: DOSE AND FREQUENCY UNKNOWN.
     Route: 065
  8. ONGLYZA [Concomitant]
  9. GLIPIZIDE [Concomitant]
  10. LEVEMIR U-100 [Concomitant]
  11. LEVOXYL [Concomitant]
  12. CITRUCEL [Concomitant]
  13. TRIAMTERENE/HTZ [Concomitant]
  14. ZINC PICOLINATE [Concomitant]
  15. ZOCOR [Concomitant]
  16. POTASSIUM CL [Concomitant]
  17. FUROSEMIDE [Concomitant]
  18. ESTRACE VAGINAL CREAM [Concomitant]
  19. MULTI VITE [Concomitant]
  20. PROBIOTIC [Concomitant]
  21. CALCIUM 600+D [Concomitant]
  22. CO Q 10 [Concomitant]
  23. PRESERVISION [Concomitant]
  24. FISH OIL CAPS [Concomitant]
  25. REFRESH LIQUIGEL EYE DROPS [Concomitant]
  26. REFRESH / CELLUVISE [Concomitant]

REACTIONS (8)
  - Oesophageal spasm [Unknown]
  - Psychomotor hyperactivity [Unknown]
  - Insomnia [Unknown]
  - Hot flush [Unknown]
  - Restlessness [Unknown]
  - Palpitations [Unknown]
  - Off label use [Unknown]
  - Drug ineffective [Unknown]
